FAERS Safety Report 4869278-4 (Version None)
Quarter: 2005Q4

REPORT INFORMATION
  Report Type: 
  Country: None (occurrence: None)
  Receive Date: 20051230
  Receipt Date: 20051220
  Transmission Date: 20060501
  Serious: Yes (Hospitalization)
  Sender: FDA-Public Use
  Company Number: FR-BRISTOL-MYERS SQUIBB COMPANY-13225131

PATIENT
  Age: 75 Year
  Sex: Male

DRUGS (12)
  1. COUMADIN [Suspect]
     Dosage: INCREASED TO 1.5 MG TWICE DAILY FROM 15-NOV-2005 AND DISCONTINUED TO 21-NOV-2005
     Route: 048
     Dates: end: 20051121
  2. VASTEN TABS 40 MG [Interacting]
     Indication: DYSLIPIDAEMIA
     Route: 048
  3. CALPARINE [Interacting]
     Route: 058
     Dates: start: 20051118, end: 20051121
  4. KARDEGIC [Interacting]
     Dosage: POWDER
     Route: 048
     Dates: end: 20051110
  5. MOPRAL [Interacting]
     Route: 042
  6. PLAVIX [Interacting]
     Route: 048
     Dates: start: 20051116, end: 20051118
  7. ALDACTONE [Concomitant]
     Route: 048
  8. CARDENSIEL [Concomitant]
     Route: 048
  9. LASILIX [Concomitant]
     Route: 048
  10. STILNOX [Concomitant]
     Route: 048
  11. VASTAREL [Concomitant]
     Route: 048
  12. ZESTRIL [Concomitant]
     Route: 048

REACTIONS (6)
  - ANAEMIA [None]
  - DRUG INTERACTION [None]
  - EPISTAXIS [None]
  - GASTRIC HAEMORRHAGE [None]
  - HAEMATOMA [None]
  - MELAENA [None]
